FAERS Safety Report 10143351 (Version 1)
Quarter: 2014Q2

REPORT INFORMATION
  Report Type: Spontaneous
  Country: US (occurrence: None)
  Receive Date: 20140429
  Receipt Date: 20140429
  Transmission Date: 20141212
  Serious: Yes (Hospitalization)
  Sender: FDA-Public Use
  Company Number: None

PATIENT
  Age: 49 Year
  Sex: Male

DRUGS (1)
  1. AFINITOR [Suspect]
     Dosage: 10 MG DAILY PO?DATES OF USE:  12/12/2013-TEMP HOLD
     Route: 048
     Dates: start: 20131212

REACTIONS (2)
  - Therapy cessation [None]
  - Malaise [None]
